FAERS Safety Report 11582418 (Version 1)
Quarter: 2015Q3

REPORT INFORMATION
  Report Type: Spontaneous
  Country: US (occurrence: None)
  Receive Date: 20150930
  Receipt Date: 20150930
  Transmission Date: 20151125
  Serious: Yes (Life-Threatening)
  Sender: FDA-Public Use
  Company Number: None

PATIENT
  Age: 57 Year
  Sex: Female
  Weight: 103.42 kg

DRUGS (6)
  1. EPIPEN [Concomitant]
     Active Substance: EPINEPHRINE
  2. ADVIL [Concomitant]
     Active Substance: IBUPROFEN
  3. PHENYLPHRINE HYDROCHLORIDE OPHT [Suspect]
     Active Substance: PHENYLEPHRINE HYDROCHLORIDE
     Indication: OPHTHALMOLOGICAL EXAMINATION
     Dosage: 2.5% FOR EXAM INTO THE EYE
  4. CETIRIZINE HCL [Concomitant]
     Active Substance: CETIRIZINE HYDROCHLORIDE
  5. TROPICAMIDE. [Suspect]
     Active Substance: TROPICAMIDE
     Indication: OPHTHALMOLOGICAL EXAMINATION
     Dosage: 1 % EYE EXAM INTO THE EYE
  6. VITAMINS [Concomitant]
     Active Substance: VITAMINS

REACTIONS (6)
  - Seizure [None]
  - Vomiting [None]
  - Rash pruritic [None]
  - Dyspnoea [None]
  - Product taste abnormal [None]
  - Nausea [None]

NARRATIVE: CASE EVENT DATE: 20150915
